FAERS Safety Report 8246194-1 (Version None)
Quarter: 2012Q1

REPORT INFORMATION
  Report Type: 
  Country: None (occurrence: None)
  Receive Date: 20120330
  Receipt Date: 20120328
  Transmission Date: 20120608
  Serious: Yes (Death, Other)
  Sender: FDA-Public Use
  Company Number: PHEH2009US09085

PATIENT
  Sex: Female

DRUGS (28)
  1. ZOMETA [Suspect]
     Dosage: UNK UKN, UNK
     Dates: end: 20050501
  2. LYRICA [Concomitant]
     Dosage: 75 MG, UNK
     Route: 048
  3. VANCOMYCIN [Concomitant]
     Dosage: UNK UKN, Q36H
  4. LOPRESSOR [Concomitant]
     Dosage: 50 MG, BID
     Route: 048
  5. NEUPOGEN [Concomitant]
     Dosage: 300 UG, QD
     Route: 058
  6. PAMIDRONATE DISODIUM [Suspect]
     Dosage: UNK UKN, UNK
  7. PROTONIX [Concomitant]
  8. XANAX [Concomitant]
  9. NIFEDIPINE [Concomitant]
     Dosage: 30 MG, QD
     Route: 048
  10. METOPROLOL SUCCINATE [Concomitant]
     Dosage: 50 MG, BID
     Route: 048
  11. PROVERA [Concomitant]
  12. COMPAZINE [Concomitant]
  13. DEPAKOTE [Concomitant]
     Dosage: 250 MG, TID
  14. PREDNISONE TAB [Concomitant]
     Dosage: 100 MG, QD
  15. DOXYCYCLINE [Concomitant]
     Dosage: 100 MG, UNK
  16. COREG [Concomitant]
     Dosage: 25 MG, UNK
     Route: 048
  17. AVELOX [Concomitant]
  18. CYCLOPHOSPHAMIDE [Concomitant]
  19. AREDIA [Suspect]
     Dosage: 90 MG, EVERY 3-4 WEEK
  20. IMODIUM [Concomitant]
  21. VELCADE [Concomitant]
  22. CLONIDINE [Concomitant]
     Dosage: 0.1 MG, UNK
     Route: 048
  23. LISINOPRIL [Concomitant]
     Dosage: 10 MG, DAILY
  24. PAXIL [Concomitant]
     Dosage: 20 MG, DAILY
  25. ATIVAN [Concomitant]
  26. REVLIMID [Concomitant]
  27. LASIX [Concomitant]
     Dosage: 40 MG, QD
     Route: 048
  28. FAMCICLOVIR [Concomitant]

REACTIONS (63)
  - CEREBROVASCULAR ACCIDENT [None]
  - BONE LOSS [None]
  - ENTERITIS [None]
  - TRICUSPID VALVE INCOMPETENCE [None]
  - ANAEMIA [None]
  - HERPES ZOSTER [None]
  - PLEURAL EFFUSION [None]
  - PANCYTOPENIA [None]
  - HYPOAESTHESIA [None]
  - DYSPNOEA [None]
  - OSTEONECROSIS OF JAW [None]
  - DISABILITY [None]
  - INJURY [None]
  - RENAL FAILURE ACUTE [None]
  - MULTIPLE MYELOMA [None]
  - MUCOSAL INFLAMMATION [None]
  - THROMBOCYTOPENIA [None]
  - HYPOKALAEMIA [None]
  - ANXIETY [None]
  - GINGIVITIS [None]
  - SUBCLAVIAN ARTERY STENOSIS [None]
  - METABOLIC ACIDOSIS [None]
  - MUSCULOSKELETAL CHEST PAIN [None]
  - NEPHROSCLEROSIS [None]
  - HYPERTENSION [None]
  - OSTEOPOROSIS [None]
  - SPINAL OSTEOARTHRITIS [None]
  - DIARRHOEA [None]
  - HYPOCALCAEMIA [None]
  - BACK PAIN [None]
  - ABDOMINAL PAIN [None]
  - HEADACHE [None]
  - DEFORMITY [None]
  - PERIODONTAL DISEASE [None]
  - PULMONARY OEDEMA [None]
  - MITRAL VALVE INCOMPETENCE [None]
  - BENCE JONES PROTEINURIA [None]
  - HAEMANGIOMA OF SPLEEN [None]
  - POOR QUALITY SLEEP [None]
  - MIGRAINE [None]
  - JAW FRACTURE [None]
  - BENIGN BREAST NEOPLASM [None]
  - IMMUNODEFICIENCY [None]
  - HYPERLIPIDAEMIA [None]
  - ABDOMINAL DISTENSION [None]
  - PAIN [None]
  - EXPOSED BONE IN JAW [None]
  - PULMONARY HYPERTENSION [None]
  - TACHYCARDIA [None]
  - POLYP COLORECTAL [None]
  - EYE PAIN [None]
  - OVERDOSE [None]
  - INFECTION [None]
  - EMOTIONAL DISTRESS [None]
  - HYPERPARATHYROIDISM [None]
  - HYPOPHOSPHATAEMIA [None]
  - CARDIAC FAILURE CONGESTIVE [None]
  - PLASMACYTOSIS [None]
  - VISUAL ACUITY REDUCED [None]
  - GASTROOESOPHAGEAL REFLUX DISEASE [None]
  - SPLENOMEGALY [None]
  - PARAESTHESIA [None]
  - EAR PAIN [None]
